FAERS Safety Report 7514179-6 (Version None)
Quarter: 2011Q2

REPORT INFORMATION
  Report Type: 
  Country: None (occurrence: None)
  Receive Date: 20110531
  Receipt Date: 20110525
  Transmission Date: 20111010
  Serious: Yes (Other)
  Sender: FDA-Public Use
  Company Number: US-B.I. PHARMACEUTICALS,INC./RIDGEFIELD-2011-BP-06789BP

PATIENT
  Age: 42 Year
  Sex: Female

DRUGS (13)
  1. PRADAXA [Suspect]
     Indication: VASCULITIS
  2. HYDROCHLOROTHIAZIDE [Concomitant]
  3. XANAX [Concomitant]
  4. LAMICTAL [Concomitant]
     Indication: CONVULSION
  5. PRADAXA [Suspect]
     Indication: DRUG THERAPY CHANGED
  6. PERCOCET [Concomitant]
     Indication: PAIN
     Route: 048
  7. COUMADIN [Concomitant]
  8. LISINOPRIL [Concomitant]
  9. PRADAXA [Suspect]
     Indication: SYSTEMIC LUPUS ERYTHEMATOSUS
     Dosage: 300 MG
     Route: 048
     Dates: start: 20101129, end: 20101201
  10. PRADAXA [Suspect]
     Indication: COAGULOPATHY
  11. METHADONE HCL [Concomitant]
     Indication: PAIN
     Route: 048
  12. PREDNISONE [Concomitant]
  13. ZOLPIDEM [Concomitant]

REACTIONS (3)
  - CONVULSION [None]
  - BLOOD URINE PRESENT [None]
  - SYNCOPE [None]
